FAERS Safety Report 15958365 (Version 1)
Quarter: 2019Q1

REPORT INFORMATION
  Report Type: Spontaneous
  Country: US (occurrence: US)
  Receive Date: 20190213
  Receipt Date: 20190213
  Transmission Date: 20190417
  Serious: No
  Sender: FDA-Public Use
  Company Number: US-NEXGEN PHARMA, INC.-2062639

PATIENT
  Age: 42 Year
  Sex: Female

DRUGS (1)
  1. CHENODAL [Suspect]
     Active Substance: CHENODIOL
     Indication: NEURONAL CEROID LIPOFUSCINOSIS
     Route: 048
     Dates: start: 20100524

REACTIONS (1)
  - Fatigue [Unknown]
